FAERS Safety Report 5719478-6 (Version None)
Quarter: 2008Q2

REPORT INFORMATION
  Report Type: 
  Country: None (occurrence: None)
  Receive Date: 20080428
  Receipt Date: 20080418
  Transmission Date: 20081010
  Serious: Yes (Hospitalization, Disabling)
  Sender: FDA-Public Use
  Company Number: DE-AVENTIS-200811085DE

PATIENT
  Age: 86 Year
  Sex: Female

DRUGS (9)
  1. DELIX                              /00885601/ [Suspect]
     Indication: HYPERTENSION
     Route: 048
     Dates: start: 20070101, end: 20070122
  2. LASIX [Suspect]
     Indication: DRUG USE FOR UNKNOWN INDICATION
     Dosage: DOSE: 40-80
     Route: 048
     Dates: start: 20070112, end: 20070122
  3. RISPERDAL [Suspect]
     Indication: DRUG USE FOR UNKNOWN INDICATION
     Route: 048
     Dates: start: 20061229, end: 20070122
  4. CONCOR                             /00802602/ [Suspect]
     Indication: DRUG USE FOR UNKNOWN INDICATION
     Route: 048
     Dates: start: 20070115, end: 20070117
  5. PANTOPRAZOL [Concomitant]
     Indication: DRUG USE FOR UNKNOWN INDICATION
     Route: 048
     Dates: start: 20070101, end: 20070122
  6. ASPIRIN [Concomitant]
     Indication: DRUG USE FOR UNKNOWN INDICATION
     Route: 048
     Dates: start: 20070101, end: 20070122
  7. ACETYLCYSTEINE [Concomitant]
     Indication: DRUG USE FOR UNKNOWN INDICATION
     Dosage: DOSE: 3X1
     Route: 048
     Dates: start: 20070110, end: 20070116
  8. MEMANTINE HCL [Concomitant]
     Indication: DRUG USE FOR UNKNOWN INDICATION
     Route: 048
     Dates: start: 20070110, end: 20070116
  9. MEMANTINE HCL [Concomitant]
     Dates: start: 20070117, end: 20070122

REACTIONS (5)
  - CEREBRAL INFARCTION [None]
  - DRUG INTERACTION [None]
  - EMBOLISM [None]
  - HEMIPARESIS [None]
  - HYPERTENSIVE HEART DISEASE [None]
